FAERS Safety Report 6441594-4 (Version None)
Quarter: 2009Q4

REPORT INFORMATION
  Report Type: 
  Country: None (occurrence: None)
  Receive Date: 20091112
  Receipt Date: 20091102
  Transmission Date: 20100525
  Serious: Yes (Death, Hospitalization)
  Sender: FDA-Public Use
  Company Number: 2009BI029172

PATIENT
  Age: 68 Year
  Sex: Male

DRUGS (2)
  1. ZEVALIN [Suspect]
     Indication: NON-HODGKIN'S LYMPHOMA REFRACTORY
     Dosage: 26.6 MCI;1X;IV
     Route: 042
     Dates: start: 20090804, end: 20090811
  2. RITUXAN [Concomitant]

REACTIONS (1)
  - TOXIC EPIDERMAL NECROLYSIS [None]
